FAERS Safety Report 9009198 (Version 1)
Quarter: 2013Q1

REPORT INFORMATION
  Report Type: Report from Study
  Country: CA (occurrence: CA)
  Receive Date: 20130111
  Receipt Date: 20130111
  Transmission Date: 20140127
  Serious: Yes (Hospitalization)
  Sender: FDA-Public Use
  Company Number: CA-ABBOTT-13P-028-1031928-00

PATIENT
  Age: 58 Year
  Sex: Female

DRUGS (1)
  1. HUMIRA [Suspect]
     Indication: RHEUMATOID ARTHRITIS
     Route: 058
     Dates: start: 20121031

REACTIONS (5)
  - Injection site cellulitis [Not Recovered/Not Resolved]
  - Pyrexia [Recovering/Resolving]
  - Injection site erythema [Recovered/Resolved]
  - Malaise [Unknown]
  - Vomiting [Unknown]
